FAERS Safety Report 6268644-2 (Version None)
Quarter: 2009Q3

REPORT INFORMATION
  Report Type: 
  Country: None (occurrence: None)
  Receive Date: 20090713
  Receipt Date: 20090713
  Transmission Date: 20100115
  Serious: No
  Sender: FDA-Public Use
  Company Number: None

PATIENT
  Age: 70 Year
  Sex: Male
  Weight: 97.5234 kg

DRUGS (1)
  1. LIPITOR [Suspect]
     Dosage: 20MG DAILY

REACTIONS (5)
  - BLOOD PRESSURE INCREASED [None]
  - HEADACHE [None]
  - HIGH DENSITY LIPOPROTEIN INCREASED [None]
  - MYALGIA [None]
  - PAIN IN EXTREMITY [None]
